FAERS Safety Report 11945184 (Version 1)
Quarter: 2016Q1

REPORT INFORMATION
  Report Type: Spontaneous
  Country: US (occurrence: US)
  Receive Date: 20160125
  Receipt Date: 20160125
  Transmission Date: 20160526
  Serious: No
  Sender: FDA-Public Use
  Company Number: US-PFIZER INC-2016015437

PATIENT
  Age: 59 Year
  Sex: Female

DRUGS (1)
  1. IBRANCE [Suspect]
     Active Substance: PALBOCICLIB
     Indication: BREAST CANCER
     Dosage: 125 MG, CYCLIC (2L DAYS/ OF FOR 7DAYS)
     Route: 048
     Dates: start: 20151225

REACTIONS (3)
  - Fatigue [Unknown]
  - Oral discomfort [Unknown]
  - Chapped lips [Unknown]
